FAERS Safety Report 4480597-6 (Version None)
Quarter: 2004Q4

REPORT INFORMATION
  Report Type: 
  Country: None (occurrence: None)
  Receive Date: 20041019
  Receipt Date: 20041004
  Transmission Date: 20050328
  Serious: Yes (Hospitalization)
  Sender: FDA-Public Use
  Company Number: 2004226756JP

PATIENT
  Age: 52 Year
  Sex: Male

DRUGS (3)
  1. AZULFIDINE EN-TABS [Suspect]
     Indication: RHEUMATOID ARTHRITIS
     Dosage: 1 G/DAY, ORAL
     Route: 048
     Dates: start: 20040715, end: 20040718
  2. FAMOTIDINE [Suspect]
     Indication: GASTRITIS
     Dosage: 20 MG/DAY, ORAL
     Route: 048
     Dates: start: 20040715, end: 20040718
  3. PREDNISOLONE [Suspect]
     Indication: RHEUMATOID ARTHRITIS
     Dosage: ORAL
     Route: 048
     Dates: start: 20040715, end: 20040718

REACTIONS (9)
  - ALANINE AMINOTRANSFERASE INCREASED [None]
  - ASPARTATE AMINOTRANSFERASE INCREASED [None]
  - DEPRESSED LEVEL OF CONSCIOUSNESS [None]
  - ERYTHEMA [None]
  - PRURITUS [None]
  - PYREXIA [None]
  - RASH [None]
  - STOMATITIS [None]
  - SYSTEMIC LUPUS ERYTHEMATOSUS [None]
